FAERS Safety Report 8235515-1 (Version None)
Quarter: 2012Q1

REPORT INFORMATION
  Report Type: 
  Country: None (occurrence: None)
  Receive Date: 20120326
  Receipt Date: 20120322
  Transmission Date: 20120608
  Serious: Yes (Death)
  Sender: FDA-Public Use
  Company Number: NO-PFIZER INC-2012075389

PATIENT
  Age: 55 Year
  Sex: Male

DRUGS (5)
  1. OXAZEPAM [Suspect]
  2. CARBAMAZEPINE [Suspect]
  3. CODEINE PHOSPHATE AND ACETAMINOPHEN [Suspect]
     Route: 048
  4. MORPHINE SULFATE [Suspect]
  5. DIAZEPAM [Suspect]

REACTIONS (2)
  - OVERDOSE [None]
  - TOXICITY TO VARIOUS AGENTS [None]
